FAERS Safety Report 7765952-0 (Version None)
Quarter: 2011Q3

REPORT INFORMATION
  Report Type: 
  Country: None (occurrence: None)
  Receive Date: 20110921
  Receipt Date: 20110913
  Transmission Date: 20111222
  Serious: Yes (Hospitalization)
  Sender: FDA-Public Use
  Company Number: US-US-EMD SERONO, INC.-7079329

PATIENT
  Sex: Female
  Weight: 124 kg

DRUGS (7)
  1. REBIF [Suspect]
     Indication: MULTIPLE SCLEROSIS
     Route: 058
     Dates: start: 20110714, end: 20110808
  2. BUMETANIDE [Concomitant]
  3. BACLOFEN [Concomitant]
     Indication: MUSCLE SPASMS
     Dosage: EVERY EIGHT HOURS HOURS
  4. DULOXETIME HYDROCHLORIDE [Concomitant]
     Dosage: AT BEDTIME
  5. NOVOLOG [Concomitant]
     Indication: TYPE 2 DIABETES MELLITUS
  6. REBIF [Suspect]
     Route: 058
     Dates: start: 20110817
  7. LANTUS [Concomitant]
     Indication: DIABETES MELLITUS

REACTIONS (11)
  - HYPOKALAEMIA [None]
  - URINARY TRACT INFECTION [None]
  - PAIN IN EXTREMITY [None]
  - ANXIETY [None]
  - DEPRESSION [None]
  - GOUT [None]
  - FLUID OVERLOAD [None]
  - BLOOD PRESSURE DECREASED [None]
  - RESPIRATORY FAILURE [None]
  - UROSEPSIS [None]
  - GASTROOESOPHAGEAL REFLUX DISEASE [None]
